FAERS Safety Report 15945662 (Version 1)
Quarter: 2019Q1

REPORT INFORMATION
  Report Type: Spontaneous
  Country: GB (occurrence: GB)
  Receive Date: 20190211
  Receipt Date: 20190211
  Transmission Date: 20190417
  Serious: Yes (Hospitalization)
  Sender: FDA-Public Use
  Company Number: GB-ACCORD-105770

PATIENT
  Age: 29 Year
  Sex: Male

DRUGS (10)
  1. CLOZAPINE. [Suspect]
     Active Substance: CLOZAPINE
     Indication: PRODUCT USED FOR UNKNOWN INDICATION
     Dosage: REDUCED TO 75 MG TWICE A DAY
  2. BACLOFEN. [Concomitant]
     Active Substance: BACLOFEN
  3. PARACETAMOL [Concomitant]
     Active Substance: ACETAMINOPHEN
  4. PIRENZEPINE/PIRENZEPINE DIHYDROCHLORIDE [Concomitant]
  5. OMEPRAZOLE. [Concomitant]
     Active Substance: OMEPRAZOLE
     Dosage: MORNING
  6. MACROGOL/MACROGOL STEARATE [Concomitant]
     Route: 048
  7. DIAZEPAM. [Concomitant]
     Active Substance: DIAZEPAM
     Dosage: 8MG MORNING, 9MG LUNCH, 10MG TEATIME, 14MG BEDTIME
  8. PROCYCLIDINE [Concomitant]
     Active Substance: PROCYCLIDINE
  9. TRAMADOL. [Concomitant]
     Active Substance: TRAMADOL
  10. GABAPENTIN. [Concomitant]
     Active Substance: GABAPENTIN
     Dosage: 500MG MORNING, 250MG TEATIME, 500MG BEDTIME

REACTIONS (2)
  - Unresponsive to stimuli [Unknown]
  - Somnolence [Unknown]
